FAERS Safety Report 7605278-9 (Version None)
Quarter: 2011Q3

REPORT INFORMATION
  Report Type: 
  Country: None (occurrence: None)
  Receive Date: 20110713
  Receipt Date: 20110627
  Transmission Date: 20111222
  Serious: Yes (Hospitalization)
  Sender: FDA-Public Use
  Company Number: US-BAYER-2011-056874

PATIENT
  Age: 39 Year
  Sex: Female
  Weight: 112 kg

DRUGS (4)
  1. ASPIRIN [Suspect]
     Indication: RHEUMATOID ARTHRITIS
     Dosage: UNK UNK, BID
     Route: 048
     Dates: start: 20091026, end: 20110609
  2. VOLTAREN [Suspect]
  3. ASPIRIN [Suspect]
  4. METHOTREXATE [Suspect]

REACTIONS (4)
  - DEHYDRATION [None]
  - VOMITING [None]
  - NAUSEA [None]
  - ABDOMINAL PAIN [None]
